FAERS Safety Report 8059469 (Version 6)
Quarter: 2013Q1

REPORT INFORMATION
  Report Type: Spontaneous
  Country: US (occurrence: US)
  Receive Date: 20110728
  Receipt Date: 20130321
  Transmission Date: 20140127
  Serious: Yes (Hospitalization, Other)
  Sender: FDA-Public Use
  Company Number: US-ASTRAZENECA-2011SE43932

PATIENT
  Age: 55 Year
  Sex: Female

DRUGS (3)
  1. SYMBICORT PMDI [Suspect]
     Route: 055
  2. NEXIUM [Suspect]
     Route: 048
  3. ATACAND [Suspect]
     Route: 048

REACTIONS (14)
  - Multiple sclerosis [Unknown]
  - Animal bite [Unknown]
  - Infection [Unknown]
  - Inflammation of wound [Unknown]
  - Chronic obstructive pulmonary disease [Unknown]
  - Dyspnoea [Unknown]
  - Scoliosis [Unknown]
  - Asphyxia [Unknown]
  - Malaise [Unknown]
  - Dysgraphia [Unknown]
  - Immune system disorder [Unknown]
  - Post-traumatic stress disorder [Unknown]
  - Insomnia [Unknown]
  - Drug dose omission [Unknown]
